FAERS Safety Report 5582704-0 (Version None)
Quarter: 2008Q1

REPORT INFORMATION
  Report Type: 
  Country: None (occurrence: None)
  Receive Date: 20080107
  Receipt Date: 20071227
  Transmission Date: 20080703
  Serious: Yes (Life-Threatening, Hospitalization, Disabling)
  Sender: FDA-Public Use
  Company Number: US-BRISTOL-MYERS SQUIBB COMPANY-13969233

PATIENT
  Age: 59 Year
  Sex: Female
  Weight: 54 kg

DRUGS (25)
  1. CYTOXAN [Suspect]
     Indication: NEOPLASM MALIGNANT
     Dosage: THERAPY COMPLETED ON 03-OCT-07. WITHDRAWN FROM STUDY ON 09-OCT-07.
     Dates: start: 20070614, end: 20071002
  2. TAXOTERE [Suspect]
     Indication: NEOPLASM MALIGNANT
     Dosage: THERAPY COMPLETED ON 03-OCT-07. WITHDRAWN FROM STUDY ON 09-OCT-07.
     Dates: start: 20070614, end: 20071002
  3. EPIRUBICIN [Suspect]
     Indication: NEOPLASM MALIGNANT
     Dosage: THERAPY COMPLETED ON 03-OCT-07. WITHDRAWN FROM STUDY ON 09-OCT-07.
     Dates: start: 20070614, end: 20071002
  4. EPOGEN [Suspect]
     Indication: ANAEMIA OF MALIGNANT DISEASE
     Dosage: ALSO BATCH # 1117 AND 1118. THERAPY DISCONTIUED ON 27SEP07.
     Route: 058
     Dates: start: 20070726, end: 20070927
  5. BENADRYL [Concomitant]
     Dosage: 11-OCT-07, 15-OCT-07, 19-OCT-07, 22-OCT-07 (12.5MG, 1 IN 1 DAY) AND INTERRUPTED INBETWEEN
     Route: 048
     Dates: start: 20070726
  6. MIRACLE MOUTHWASH [Concomitant]
     Route: 048
     Dates: start: 20070620
  7. MYLANTA [Concomitant]
     Route: 048
     Dates: start: 20070730
  8. HYDROCODONE BITARTRATE [Concomitant]
     Route: 048
     Dates: start: 20070809
  9. IBUPROFEN [Concomitant]
     Indication: BLOOD MAGNESIUM DECREASED
     Route: 048
     Dates: start: 20070825
  10. MAGNESIUM OXIDE [Concomitant]
     Indication: BLOOD MAGNESIUM DECREASED
     Route: 048
     Dates: start: 20070911
  11. COUMADIN [Concomitant]
     Indication: VENOUS THROMBOSIS
     Dosage: DRUG WAS HELD AND RESTARTED ON 17-OCT-07
     Route: 048
     Dates: start: 20071002
  12. ARIXTRA [Concomitant]
     Indication: VENOUS THROMBOSIS
     Route: 058
     Dates: start: 20071002
  13. FLAGYL [Concomitant]
     Indication: CLOSTRIDIAL INFECTION
     Route: 048
     Dates: start: 20070917
  14. POTASSIUM CHLORIDE [Concomitant]
     Indication: HYPOKALAEMIA
     Route: 048
     Dates: start: 20070918
  15. NEULASTA [Concomitant]
     Indication: DEPRESSION
     Route: 058
     Dates: start: 20071004
  16. ALOXI [Concomitant]
     Indication: DEPRESSION
     Route: 042
     Dates: start: 20071003
  17. TAGAMET [Concomitant]
     Indication: DEPRESSION
     Route: 042
     Dates: start: 20070906
  18. EFFEXOR XR [Concomitant]
     Indication: DEPRESSION
     Route: 048
     Dates: start: 20071009
  19. DECADRON [Concomitant]
     Route: 042
     Dates: start: 20070906
  20. PHENERGAN HCL [Concomitant]
     Route: 042
     Dates: start: 20070906
  21. FENTANYL TRANSDERMAL SYSTEM [Concomitant]
     Route: 062
     Dates: start: 20070830
  22. ATIVAN [Concomitant]
     Dates: start: 20071002
  23. SODIUM CHLORIDE [Concomitant]
     Indication: DEHYDRATION
     Dosage: 100ML-11OCT07;150ML-18OCT07;75ML-19OCT07-ALL 1 IN 1 HR.
     Route: 042
     Dates: start: 20071011
  24. TYLENOL [Concomitant]
     Route: 048
     Dates: start: 20071011
  25. ZOFRAN [Concomitant]
     Route: 042
     Dates: start: 20071011

REACTIONS (7)
  - CLOSTRIDIUM DIFFICILE COLITIS [None]
  - FATIGUE [None]
  - FEBRILE NEUTROPENIA [None]
  - NAUSEA [None]
  - OEDEMA PERIPHERAL [None]
  - PANCYTOPENIA [None]
  - VOMITING [None]
